FAERS Safety Report 19156398 (Version 1)
Quarter: 2021Q2

REPORT INFORMATION
  Report Type: Spontaneous
  Country: US (occurrence: US)
  Receive Date: 20210420
  Receipt Date: 20210420
  Transmission Date: 20210717
  Serious: No
  Sender: FDA-Public Use
  Company Number: US-ADVANZ PHARMA-202104002746

PATIENT

DRUGS (37)
  1. BACLOFEN. [Concomitant]
     Active Substance: BACLOFEN
     Dosage: UNK
  2. CHOLECALCIFEROL [Concomitant]
     Active Substance: CHOLECALCIFEROL
     Dosage: UNK
  3. LASIX [Concomitant]
     Active Substance: FUROSEMIDE
     Dosage: UNK
  4. BACTRIM DS [Concomitant]
     Active Substance: SULFAMETHOXAZOLE\TRIMETHOPRIM
     Dosage: UNK
  5. TRIAMCINOLONE ACETONIDE. [Concomitant]
     Active Substance: TRIAMCINOLONE ACETONIDE
     Dosage: UNK
  6. DULOXETINE. [Concomitant]
     Active Substance: DULOXETINE
     Dosage: UNK
  7. EMGALITY [Concomitant]
     Active Substance: GALCANEZUMAB-GNLM
     Dosage: UNK
  8. ARAVA [Concomitant]
     Active Substance: LEFLUNOMIDE
     Dosage: UNK
  9. MELATONIN [Concomitant]
     Active Substance: MELATONIN
     Dosage: UNK
  10. PRILOSEC [Concomitant]
     Active Substance: OMEPRAZOLE MAGNESIUM
     Dosage: UNK
  11. RIZATRIPTAM [Concomitant]
     Dosage: UNK
  12. DEXTROAMPHETAMINE. [Concomitant]
     Active Substance: DEXTROAMPHETAMINE
     Dosage: UNK
  13. METOPROLOL TARTRATE. [Concomitant]
     Active Substance: METOPROLOL TARTRATE
     Dosage: UNK
  14. MORPHINE [Concomitant]
     Active Substance: MORPHINE
     Dosage: UNK
  15. WARFARIN SODIUM. [Concomitant]
     Active Substance: WARFARIN SODIUM
     Dosage: UNK
  16. ELEMENTAL CALCIUM [Concomitant]
     Active Substance: CALCIUM
     Dosage: UNK
  17. FOLIC ACID. [Concomitant]
     Active Substance: FOLIC ACID
     Dosage: UNK
  18. EMLA [Concomitant]
     Active Substance: LIDOCAINE\PRILOCAINE
     Dosage: UNK
  19. OXYBUTYNIN CHLORIDE. [Concomitant]
     Active Substance: OXYBUTYNIN CHLORIDE
     Dosage: UNK
  20. POTASSIUM [Concomitant]
     Active Substance: POTASSIUM
     Dosage: UNK
  21. PREDNISONE. [Concomitant]
     Active Substance: PREDNISONE
     Dosage: UNK
  22. TIZANIDINE. [Concomitant]
     Active Substance: TIZANIDINE
  23. AMLODIPINE [Concomitant]
     Active Substance: AMLODIPINE BESYLATE
     Dosage: UNK
  24. NORCO [Concomitant]
     Active Substance: ACETAMINOPHEN\HYDROCODONE BITARTRATE
     Dosage: UNK
  25. TRAZODONE HYDROCHLORIDE. [Concomitant]
     Active Substance: TRAZODONE HYDROCHLORIDE
     Dosage: UNK
  26. VITAMIN B6 [Concomitant]
     Active Substance: PYRIDOXINE HYDROCHLORIDE
     Dosage: UNK
  27. FAMOTIDINE. [Concomitant]
     Active Substance: FAMOTIDINE
     Dosage: UNK
  28. NEURONTIN [Concomitant]
     Active Substance: GABAPENTIN
     Dosage: UNK
  29. LIDOCAINE. [Concomitant]
     Active Substance: LIDOCAINE
     Dosage: UNK
  30. AZULFIDINE [Concomitant]
     Active Substance: SULFASALAZINE
     Dosage: UNK
  31. VITAMIN D [Concomitant]
     Active Substance: VITAMIN D NOS
     Dosage: UNK
  32. HYDROXYCHLOROQUINE [Suspect]
     Active Substance: HYDROXYCHLOROQUINE
     Indication: PRODUCT USED FOR UNKNOWN INDICATION
     Dosage: UNK
  33. FLXERIL [Concomitant]
     Dosage: UNK
  34. IVIG [Concomitant]
     Active Substance: HUMAN IMMUNOGLOBULIN G
     Dosage: UNK
  35. MIGRANOL [Concomitant]
     Dosage: UNK
  36. CRESTOR [Concomitant]
     Active Substance: ROSUVASTATIN CALCIUM
     Dosage: UNK
  37. XELJANZ XR [Concomitant]
     Active Substance: TOFACITINIB CITRATE
     Dosage: UNK

REACTIONS (1)
  - Drug ineffective [Unknown]
